FAERS Safety Report 24994373 (Version 1)
Quarter: 2025Q1

REPORT INFORMATION
  Report Type: Spontaneous
  Country: US (occurrence: None)
  Receive Date: 20250220
  Receipt Date: 20250220
  Transmission Date: 20250409
  Serious: No
  Sender: FDA-CTU
  Company Number: None

PATIENT
  Age: 74 Year
  Weight: 66.68 kg

DRUGS (1)
  1. COSENTYX [Suspect]
     Active Substance: SECUKINUMAB
     Indication: Ankylosing spondylitis
     Dosage: OTHER QUANTITY : 150MG (1 PEN);?FREQUENCY : EVERY OTHER WEEK;?
     Route: 058
     Dates: start: 202501

REACTIONS (1)
  - Pharyngitis streptococcal [None]
